FAERS Safety Report 18022793 (Version 1)
Quarter: 2020Q3

REPORT INFORMATION
  Report Type: Spontaneous
  Country: JP (occurrence: JP)
  Receive Date: 20200714
  Receipt Date: 20200714
  Transmission Date: 20201103
  Serious: Yes (Other)
  Sender: FDA-Public Use
  Company Number: JP-PFIZER INC-2019558027

PATIENT
  Age: 6 Decade
  Sex: Female

DRUGS (3)
  1. LETROZOLE. [Suspect]
     Active Substance: LETROZOLE
  2. IBRANCE [Suspect]
     Active Substance: PALBOCICLIB
     Dosage: 100 MG, CYCLIC (3 WEEKS ON, 1 WEEKS OFF)
  3. IBRANCE [Suspect]
     Active Substance: PALBOCICLIB
     Dosage: 50 MG, CYCLIC

REACTIONS (6)
  - White blood cell count decreased [Unknown]
  - Intentional underdose [Unknown]
  - Neutrophil count decreased [Unknown]
  - Tumour marker increased [Unknown]
  - Arthralgia [Recovering/Resolving]
  - Myelosuppression [Unknown]
